FAERS Safety Report 9180809 (Version 1)
Quarter: 2013Q1

REPORT INFORMATION
  Report Type: Report from Study
  Country: CA (occurrence: CA)
  Receive Date: 20130322
  Receipt Date: 20130322
  Transmission Date: 20140127
  Serious: Yes (Hospitalization)
  Sender: FDA-Public Use
  Company Number: CA-JNJFOC-20130307556

PATIENT
  Age: 18 Year
  Sex: Male
  Weight: 84.3 kg

DRUGS (3)
  1. REMICADE [Suspect]
     Indication: COLITIS ULCERATIVE
     Dosage: HAS HAD 8 INFUSIONS
     Route: 042
     Dates: start: 20120417
  2. IMURAN [Concomitant]
     Route: 065
  3. ASACOL [Concomitant]
     Route: 065

REACTIONS (1)
  - Parathyroidectomy [Recovered/Resolved]
